FAERS Safety Report 13686911 (Version 1)
Quarter: 2017Q2

REPORT INFORMATION
  Report Type: Spontaneous
  Country: US (occurrence: US)
  Receive Date: 20170623
  Receipt Date: 20170623
  Transmission Date: 20170830
  Serious: Yes (Hospitalization, Other)
  Sender: FDA-Public Use
  Company Number: US-SUNOVION-2017SUN002656

PATIENT
  Sex: Female

DRUGS (7)
  1. LATUDA [Suspect]
     Active Substance: LURASIDONE HYDROCHLORIDE
     Indication: MANIA
     Dosage: UNK
     Route: 048
  2. NUVIGIL [Concomitant]
     Active Substance: ARMODAFINIL
  3. SEROQUEL [Concomitant]
     Active Substance: QUETIAPINE FUMARATE
     Dosage: 800 UNK, UNK
  4. SEROQUEL [Concomitant]
     Active Substance: QUETIAPINE FUMARATE
     Indication: MANIA
     Dosage: 800 MG, UNK
  5. PROVIGIL [Concomitant]
     Active Substance: MODAFINIL
  6. ABILIFY [Suspect]
     Active Substance: ARIPIPRAZOLE
     Indication: MANIA
  7. SEROQUEL [Concomitant]
     Active Substance: QUETIAPINE FUMARATE
     Dosage: 600 UNK, UNK

REACTIONS (3)
  - Psychotic disorder [Unknown]
  - Mania [Unknown]
  - Off label use [Unknown]
